FAERS Safety Report 19874519 (Version 1)
Quarter: 2021Q3

REPORT INFORMATION
  Report Type: Spontaneous
  Country: US (occurrence: US)
  Receive Date: 20210922
  Receipt Date: 20210922
  Transmission Date: 20211014
  Serious: No
  Sender: FDA-Public Use
  Company Number: US-SA-2021SA309391

PATIENT
  Age: 19 Year
  Sex: Male

DRUGS (5)
  1. SELSUN BLUE ITCHY DRY SCALP [Concomitant]
     Active Substance: PYRITHIONE ZINC
     Dosage: UNK
  2. SELSUN BLUE 2 IN 1 TREATMENT ANTI?DANDRUFF [Concomitant]
     Dosage: UNK
  3. SELSUN BLUE MEDICATED [Suspect]
     Active Substance: SELENIUM SULFIDE
     Indication: DRY SKIN
     Dosage: UNK
  4. SELSUN BLUE MEDICATED [Suspect]
     Active Substance: SELENIUM SULFIDE
     Indication: PRURITUS
  5. HEAD AND SHOULDERS [Concomitant]
     Active Substance: PYRITHIONE ZINC
     Dosage: UNK

REACTIONS (1)
  - Drug effect less than expected [Unknown]
